FAERS Safety Report 4721440-7 (Version None)
Quarter: 2005Q3

REPORT INFORMATION
  Report Type: 
  Country: None (occurrence: None)
  Receive Date: 20050721
  Receipt Date: 20040908
  Transmission Date: 20060218
  Serious: Yes (Other)
  Sender: FDA-Public Use
  Company Number: US-BRISTOL-MYERS SQUIBB COMPANY-12696233

PATIENT
  Age: 53 Year
  Sex: Female
  Weight: 110 kg

DRUGS (26)
  1. COUMADIN [Suspect]
     Indication: DEEP VEIN THROMBOSIS
     Dosage: 8/27-8/29=10MG, 8/30=4MG, 8/31-9/2=10MG, 9/3=12MG, 9/4=15MG, 9/5=17.5MG, 9/6=20MG,9/7=10MG, 9/8=15MG
     Route: 048
     Dates: start: 20040827
  2. ACYCLOVIR [Concomitant]
  3. LOPID [Concomitant]
  4. MEVACOR [Concomitant]
  5. NORVASC [Concomitant]
  6. COLACE [Concomitant]
  7. EPOGEN [Concomitant]
  8. IRON SUPPLEMENT [Concomitant]
  9. LASIX [Concomitant]
  10. FOLIC ACID [Concomitant]
  11. NEURONTIN [Concomitant]
  12. REGULAR INSULIN [Concomitant]
  13. NPH INSULIN [Concomitant]
  14. COZAAR [Concomitant]
  15. METFORMIN HCL [Concomitant]
  16. METOLAZONE [Concomitant]
  17. AMBIEN [Concomitant]
  18. DULCOLAX [Concomitant]
  19. DILAUDID [Concomitant]
  20. HYDROXYZINE [Concomitant]
  21. ATIVAN [Concomitant]
  22. MOM [Concomitant]
  23. MIRALAX [Concomitant]
  24. DARVOCET [Concomitant]
  25. SENOKOT [Concomitant]
  26. FLEET ENEMA [Concomitant]

REACTIONS (2)
  - DRUG INEFFECTIVE [None]
  - INTERNATIONAL NORMALISED RATIO DECREASED [None]
